FAERS Safety Report 7010874-6 (Version None)
Quarter: 2010Q3

REPORT INFORMATION
  Report Type: 
  Country: None (occurrence: None)
  Receive Date: 20100923
  Receipt Date: 20100921
  Transmission Date: 20110219
  Serious: Yes (Hospitalization)
  Sender: FDA-Public Use
  Company Number: IT-MERCK-1009ITA00027

PATIENT
  Age: 79 Year
  Sex: Male

DRUGS (7)
  1. ZOCOR [Suspect]
     Indication: HYPERTENSION
     Route: 065
  2. ZOCOR [Suspect]
     Route: 048
  3. ZOCOR [Suspect]
     Indication: CORONARY ARTERY DISEASE
     Route: 065
  4. ZOCOR [Suspect]
     Route: 048
  5. RAMIPRIL [Concomitant]
     Route: 065
  6. ATENOLOL [Concomitant]
     Route: 065
  7. ASPIRIN [Concomitant]
     Route: 065

REACTIONS (1)
  - LEUKOCYTOCLASTIC VASCULITIS [None]
